FAERS Safety Report 7397410-X (Version None)
Quarter: 2011Q2

REPORT INFORMATION
  Report Type: 
  Country: None (occurrence: None)
  Receive Date: 20110406
  Receipt Date: 20110328
  Transmission Date: 20111010
  Serious: Yes (Hospitalization)
  Sender: FDA-Public Use
  Company Number: US-ASTRAZENECA-2011SE17292

PATIENT
  Age: 50 Year
  Sex: Male
  Weight: 95.3 kg

DRUGS (3)
  1. NACRO [Concomitant]
     Indication: ARTHRALGIA
  2. NEXIUM [Suspect]
     Route: 048
     Dates: start: 20080101
  3. NEXIUM [Suspect]
     Indication: DYSPEPSIA
     Route: 048
     Dates: start: 20080101

REACTIONS (2)
  - KNEE OPERATION [None]
  - DRUG DOSE OMISSION [None]
